FAERS Safety Report 5662219-1 (Version None)
Quarter: 2008Q1

REPORT INFORMATION
  Report Type: 
  Country: None (occurrence: None)
  Receive Date: 20080312
  Receipt Date: 20080304
  Transmission Date: 20080703
  Serious: Yes (Death, Other)
  Sender: FDA-Public Use
  Company Number: GB-PFIZER INC-2005120788

PATIENT
  Age: 15 Year
  Sex: Male

DRUGS (6)
  1. PREDNISOLONE [Suspect]
     Indication: LIVER TRANSPLANT
     Dosage: FREQ:UNKNOWN
     Route: 065
  2. VORICONAZOLE [Suspect]
     Indication: ILL-DEFINED DISORDER
     Dosage: FREQ:UNKNOWN
     Route: 065
  3. TACROLIMUS [Suspect]
     Indication: LIVER TRANSPLANT
     Dosage: FREQ:UNKNOWN
     Route: 065
  4. MYCOPHENOLIC ACID [Suspect]
     Indication: ILL-DEFINED DISORDER
     Dosage: FREQ:UNKNOWN
     Route: 065
  5. CASPOFUNGIN [Suspect]
     Indication: ILL-DEFINED DISORDER
     Dosage: FREQ:UNKNOWN
     Route: 065
  6. METHYLPREDNISOLONE [Concomitant]

REACTIONS (10)
  - ABDOMINAL PAIN [None]
  - AUTOIMMUNE HEPATITIS [None]
  - BRONCHOPULMONARY ASPERGILLOSIS [None]
  - DRUG INEFFECTIVE [None]
  - HAEMOPTYSIS [None]
  - HYDROPNEUMOTHORAX [None]
  - JAUNDICE [None]
  - LUNG DISORDER [None]
  - PSEUDOMONAS INFECTION [None]
  - RESPIRATORY FAILURE [None]
